FAERS Safety Report 14893953 (Version 1)
Quarter: 2018Q2

REPORT INFORMATION
  Report Type: Spontaneous
  Country: US (occurrence: US)
  Receive Date: 20180425
  Receipt Date: 20180425
  Transmission Date: 20180711
  Serious: Yes (Other)
  Sender: FDA-Public Use
  Company Number: None

PATIENT
  Age: 73 Year
  Sex: Male
  Weight: 86.2 kg

DRUGS (16)
  1. FOLIC ACID. [Concomitant]
     Active Substance: FOLIC ACID
  2. DENOSUMAB [Concomitant]
     Active Substance: DENOSUMAB
  3. INSULIN [Concomitant]
     Active Substance: INSULIN NOS
  4. COQ10 [Concomitant]
     Active Substance: UBIDECARENONE
  5. VITAMIN D [Concomitant]
     Active Substance: CHOLECALCIFEROL
  6. ENZALUTAMIDE [Suspect]
     Active Substance: ENZALUTAMIDE
     Indication: PROSTATE CANCER
     Route: 048
     Dates: start: 20160726
  7. SPIRONOLACTONE. [Concomitant]
     Active Substance: SPIRONOLACTONE
  8. ZENPEP [Concomitant]
     Active Substance: PANCRELIPASE AMYLASE\PANCRELIPASE LIPASE\PANCRELIPASE PROTEASE
  9. ALLOPURINAL [Concomitant]
     Active Substance: ALLOPURINOL
  10. TORSEMIDE. [Concomitant]
     Active Substance: TORSEMIDE
  11. FUROSEMIDE. [Concomitant]
     Active Substance: FUROSEMIDE
  12. CARVEDILOL. [Concomitant]
     Active Substance: CARVEDILOL
  13. LUPRON [Concomitant]
     Active Substance: LEUPROLIDE ACETATE
  14. OMEPRAZOLE. [Concomitant]
     Active Substance: OMEPRAZOLE
  15. CICLOPIROX. [Concomitant]
     Active Substance: CICLOPIROX
  16. METOLAZONE. [Concomitant]
     Active Substance: METOLAZONE

REACTIONS (1)
  - Transitional cell carcinoma [None]

NARRATIVE: CASE EVENT DATE: 20180412
